FAERS Safety Report 8319930-3 (Version None)
Quarter: 2012Q2

REPORT INFORMATION
  Report Type: 
  Country: None (occurrence: None)
  Receive Date: 20120427
  Receipt Date: 20120417
  Transmission Date: 20120825
  Serious: Yes (Hospitalization)
  Sender: FDA-Public Use
  Company Number: US-CELGENEUS-163-21880-12032659

PATIENT
  Sex: Male

DRUGS (9)
  1. REVLIMID [Suspect]
     Dosage: 15 MILLIGRAM
     Route: 048
     Dates: start: 20110601
  2. COUMADIN [Concomitant]
     Indication: ATRIAL FIBRILLATION
     Route: 065
  3. REVLIMID [Suspect]
     Indication: MULTIPLE MYELOMA
     Dosage: 25 MILLIGRAM
     Route: 048
     Dates: start: 20110314, end: 20110101
  4. DURAGESIC-100 [Concomitant]
     Route: 065
     Dates: start: 20111202
  5. DECADRON [Concomitant]
     Route: 065
     Dates: start: 20111030
  6. SODIUM CHLORIDE 0.9% [Concomitant]
     Route: 065
     Dates: start: 20111202
  7. ZOMETA [Concomitant]
     Route: 065
     Dates: start: 20111202
  8. REVLIMID [Suspect]
     Dosage: 15 MILLIGRAM
     Route: 048
  9. HEPARIN (PORCINE LOCK FLUSH) [Concomitant]
     Route: 065
     Dates: start: 20111202

REACTIONS (2)
  - MYOCARDIAL INFARCTION [None]
  - RENAL DISORDER [None]
